FAERS Safety Report 8603950-5 (Version None)
Quarter: 2012Q3

REPORT INFORMATION
  Report Type: 
  Country: None (occurrence: None)
  Receive Date: 20120820
  Receipt Date: 20120807
  Transmission Date: 20120928
  Serious: Yes (Other)
  Sender: FDA-Public Use
  Company Number: US-BIOGENIDEC-2012BI030703

PATIENT
  Age: 61 Year
  Sex: Female

DRUGS (2)
  1. GLATIRAMER ACETATE [Concomitant]
     Indication: MULTIPLE SCLEROSIS
     Dates: start: 20100801
  2. TYSABRI [Suspect]
     Indication: MULTIPLE SCLEROSIS
     Route: 042
     Dates: start: 20070401, end: 20100701

REACTIONS (3)
  - MULTIPLE SCLEROSIS RELAPSE [None]
  - IMMUNE RECONSTITUTION SYNDROME [None]
  - ENCEPHALOMYELITIS [None]
